FAERS Safety Report 9991285 (Version 3)
Quarter: 2014Q2

REPORT INFORMATION
  Report Type: Spontaneous
  Country: CO (occurrence: CO)
  Receive Date: 20140310
  Receipt Date: 20140411
  Transmission Date: 20141212
  Serious: Yes (Hospitalization, Other)
  Sender: FDA-Public Use
  Company Number: CO-009507513-1403COL004163

PATIENT
  Age: 35 Year
  Sex: Male
  Weight: 62 kg

DRUGS (7)
  1. VICTRELIS [Suspect]
     Indication: HEPATITIS C
     Dosage: 800MG/8HRS
     Route: 048
     Dates: start: 20131220, end: 20140305
  2. REBETOL [Suspect]
     Indication: HEPATITIS C
     Dosage: 800 MG DAILY
     Route: 048
     Dates: start: 20131122, end: 20140307
  3. PEG-INTRON [Suspect]
     Indication: HEPATITIS C
     Dosage: REDIPEN 120MCG/ 1 AMPULE WEEKLY
     Route: 058
     Dates: start: 20131122, end: 20140305
  4. METHADONE HYDROCHLORIDE [Concomitant]
     Indication: DRUG REHABILITATION
     Dosage: 40MG AT THE MORNING
     Route: 048
  5. METHADONE HYDROCHLORIDE [Concomitant]
     Dosage: 20 MG AT NIGHT
     Route: 048
  6. CLOZAPINE [Concomitant]
     Indication: SCHIZOPHRENIA
     Dosage: 100MG EACH 12HRS
     Route: 048
  7. BISACODYL [Concomitant]
     Dosage: 5MG/DAY

REACTIONS (7)
  - Thrombophlebitis [Recovered/Resolved]
  - Pulmonary cavitation [Unknown]
  - Pulmonary tuberculosis [Recovering/Resolving]
  - Head injury [Unknown]
  - Pulmonary embolism [Recovering/Resolving]
  - Deep vein thrombosis [Recovering/Resolving]
  - Embolism venous [Unknown]
